FAERS Safety Report 9790885 (Version 1)
Quarter: 2013Q4

REPORT INFORMATION
  Report Type: Spontaneous
  Country: FR (occurrence: FR)
  Receive Date: 20131231
  Receipt Date: 20131231
  Transmission Date: 20140711
  Serious: Yes (Death, Other)
  Sender: FDA-Public Use
  Company Number: FR-BRISTOL-MYERS SQUIBB COMPANY-19936319

PATIENT
  Age: 90 Year
  Sex: Female

DRUGS (6)
  1. COUMADINE [Suspect]
     Indication: ATRIAL FIBRILLATION
     Dosage: 2MG?FOR 13 DAYS
     Dates: start: 20130905, end: 20130917
  2. COLCHICINE [Suspect]
     Indication: GOUT
     Route: 048
     Dates: start: 20130914, end: 20130916
  3. BISOPROLOL [Concomitant]
     Indication: HYPERTENSION
     Dates: start: 20130905, end: 20130930
  4. FOLIC ACID [Concomitant]
     Dates: start: 20130916, end: 20130917
  5. FUMAFER [Concomitant]
     Route: 048
     Dates: start: 20130916, end: 20130917
  6. CALCIDOSE [Concomitant]
     Route: 048
     Dates: start: 20130916, end: 20130917

REACTIONS (3)
  - Death [Fatal]
  - International normalised ratio increased [Unknown]
  - Extremity necrosis [Unknown]
